FAERS Safety Report 9909635 (Version 1)
Quarter: 2014Q1

REPORT INFORMATION
  Report Type: Spontaneous
  Country: US (occurrence: US)
  Receive Date: 20140219
  Receipt Date: 20140219
  Transmission Date: 20141002
  Serious: Yes (Other)
  Sender: FDA-Public Use
  Company Number: US-GLAXOSMITHKLINE-A1061552A

PATIENT
  Age: 75 Year
  Sex: Female

DRUGS (8)
  1. COREG [Suspect]
     Indication: CARDIOMYOPATHY
     Dosage: 25MG TWICE PER DAY
     Route: 065
     Dates: start: 2006
  2. DIOVAN [Suspect]
     Indication: CARDIOMYOPATHY
     Dosage: 80MG TWICE PER DAY
     Route: 065
     Dates: start: 2006
  3. EPLERENONE [Suspect]
     Indication: HYPERALDOSTERONISM
     Dosage: 25MG TWICE PER DAY
     Route: 065
     Dates: start: 2010
  4. SOTALOL [Suspect]
     Indication: PRODUCT USED FOR UNKNOWN INDICATION
     Route: 065
  5. LISINOPRIL [Suspect]
     Indication: PRODUCT USED FOR UNKNOWN INDICATION
     Route: 065
  6. UNSPECIFIED MEDICATIONS [Suspect]
     Indication: PRODUCT USED FOR UNKNOWN INDICATION
     Route: 065
  7. CITRACAL [Concomitant]
     Indication: OSTEOPOROSIS
  8. KONSYL 100 PERCENT NATURAL PSYLLIUM FIBER [Concomitant]
     Indication: GASTROINTESTINAL DISORDER

REACTIONS (2)
  - Cardiac pacemaker insertion [Unknown]
  - Drug interaction [Unknown]
